FAERS Safety Report 4392238-7 (Version None)
Quarter: 2004Q3

REPORT INFORMATION
  Report Type: 
  Country: None (occurrence: None)
  Receive Date: 20040702
  Receipt Date: 20040624
  Transmission Date: 20050211
  Serious: Yes (Other)
  Sender: FDA-Public Use
  Company Number: 2004-06-1675

PATIENT
  Age: 55 Year
  Sex: Male

DRUGS (2)
  1. INTRON A [Suspect]
     Indication: BLADDER CANCER
     Dosage: 50 MIU QWK INTRAVESICAL
     Route: 043
     Dates: start: 20040430, end: 20040604
  2. BCG VACCINE INJECTABLE [Suspect]
     Indication: BLADDER CANCER
     Dosage: 81 MG QWK INTRAVESICAL
     Route: 043
     Dates: start: 20040430, end: 20040604

REACTIONS (10)
  - ARTHRALGIA [None]
  - CONJUNCTIVITIS [None]
  - EYE PRURITUS [None]
  - EYE REDNESS [None]
  - EYE SWELLING [None]
  - HYPERSENSITIVITY [None]
  - JOINT EFFUSION [None]
  - JOINT SWELLING [None]
  - PYREXIA [None]
  - WHITE BLOOD CELLS URINE POSITIVE [None]
